FAERS Safety Report 12157547 (Version 1)
Quarter: 2016Q1

REPORT INFORMATION
  Report Type: Report from Study
  Country: IT (occurrence: IT)
  Receive Date: 20160308
  Receipt Date: 20160308
  Transmission Date: 20160526
  Serious: Yes (Hospitalization)
  Sender: FDA-Public Use
  Company Number: IT-ACCORD-038394

PATIENT
  Age: 64 Year
  Sex: Male

DRUGS (1)
  1. QUETIAPINE [Suspect]
     Active Substance: QUETIAPINE
     Dosage: RECEIVED ABOUT 20 TABLETS OF QUETIAPINE 200 MG
     Route: 048
     Dates: start: 20150301, end: 20150301

REACTIONS (3)
  - Sopor [Recovering/Resolving]
  - Atrial fibrillation [Recovering/Resolving]
  - Intentional self-injury [Unknown]

NARRATIVE: CASE EVENT DATE: 20150301
